FAERS Safety Report 18338344 (Version 3)
Quarter: 2020Q4

REPORT INFORMATION
  Report Type: Spontaneous
  Country: BR (occurrence: BR)
  Receive Date: 20201002
  Receipt Date: 20201118
  Transmission Date: 20210113
  Serious: Yes (Other)
  Sender: FDA-Public Use
  Company Number: BR-PFIZER INC-2020377196

PATIENT
  Sex: Female

DRUGS (1)
  1. ELIFORE [Suspect]
     Active Substance: DESVENLAFAXINE SUCCINATE
     Indication: DEPRESSION
     Dosage: UNK
     Dates: start: 2019

REACTIONS (7)
  - Hot flush [Unknown]
  - Drug ineffective [Unknown]
  - Tinnitus [Unknown]
  - Dysentery [Unknown]
  - Paraesthesia [Unknown]
  - Hyperhidrosis [Unknown]
  - Product residue present [Unknown]
